FAERS Safety Report 11457620 (Version 1)
Quarter: 2015Q3

REPORT INFORMATION
  Report Type: Spontaneous
  Country: DE (occurrence: DE)
  Receive Date: 20150904
  Receipt Date: 20150904
  Transmission Date: 20151125
  Serious: Yes (Hospitalization)
  Sender: FDA-Public Use
  Company Number: GB-ASTRAZENECA-2015SE63330

PATIENT
  Age: 57 Year
  Sex: Male
  Weight: 118 kg

DRUGS (11)
  1. IDARUBICIN HYDROCHLORIDE. [Concomitant]
     Active Substance: IDARUBICIN HYDROCHLORIDE
     Indication: ACUTE MYELOID LEUKAEMIA
     Dates: start: 20150508, end: 20150512
  2. NOXAFIL [Concomitant]
     Active Substance: POSACONAZOLE
     Indication: PYREXIA
     Dates: start: 20150525, end: 20150526
  3. MERONEM [Suspect]
     Active Substance: MEROPENEM
     Indication: PYREXIA
     Route: 042
     Dates: start: 20150523, end: 20150523
  4. MERONEM [Suspect]
     Active Substance: MEROPENEM
     Indication: PYREXIA
     Dosage: 4 G
     Route: 042
     Dates: start: 20150524, end: 20150524
  5. TAVANIC [Concomitant]
     Active Substance: LEVOFLOXACIN
     Indication: PROPHYLAXIS
     Dates: start: 20150505, end: 20150521
  6. NO DRUG NAME [Suspect]
     Active Substance: UNSPECIFIED INGREDIENT
     Indication: ACUTE MYELOID LEUKAEMIA
     Route: 065
     Dates: start: 20150511
  7. CLINDAMYCIN [Concomitant]
     Active Substance: CLINDAMYCIN\CLINDAMYCIN PHOSPHATE
     Indication: PYREXIA
     Dates: start: 20150520, end: 20150526
  8. ETOPOSIDE. [Concomitant]
     Active Substance: ETOPOSIDE
     Indication: ACUTE MYELOID LEUKAEMIA
     Dates: start: 20150508, end: 20150510
  9. ATRA [Concomitant]
     Active Substance: TRETINOIN
     Indication: ACUTE MYELOID LEUKAEMIA
     Dates: start: 20150516, end: 20150628
  10. CYTARABINE. [Concomitant]
     Active Substance: CYTARABINE
     Indication: ACUTE MYELOID LEUKAEMIA
     Dates: start: 20150508, end: 20150514
  11. NOXAFIL [Concomitant]
     Active Substance: POSACONAZOLE
     Indication: PYREXIA
     Dates: start: 20150515, end: 20150526

REACTIONS (1)
  - Erythema nodosum [Recovered/Resolved]

NARRATIVE: CASE EVENT DATE: 20150525
